FAERS Safety Report 25312523 (Version 1)
Quarter: 2025Q2

REPORT INFORMATION
  Report Type: Spontaneous
  Country: PL (occurrence: PL)
  Receive Date: 20250514
  Receipt Date: 20250514
  Transmission Date: 20250716
  Serious: Yes (Other)
  Sender: MYLAN
  Company Number: PL-MYLANLABS-2025M1040154

PATIENT
  Age: 41 Year
  Sex: Female

DRUGS (12)
  1. ALPRAZOLAM [Interacting]
     Active Substance: ALPRAZOLAM
     Indication: Product used for unknown indication
     Dosage: 1 MILLIGRAM, TID
  2. ALPRAZOLAM [Interacting]
     Active Substance: ALPRAZOLAM
     Dosage: 1 MILLIGRAM, TID
     Route: 048
  3. ALPRAZOLAM [Interacting]
     Active Substance: ALPRAZOLAM
     Dosage: 1 MILLIGRAM, TID
     Route: 048
  4. ALPRAZOLAM [Interacting]
     Active Substance: ALPRAZOLAM
     Dosage: 1 MILLIGRAM, TID
  5. ACETAMINOPHEN\CODEINE PHOSPHATE [Interacting]
     Active Substance: ACETAMINOPHEN\CODEINE PHOSPHATE
     Indication: Product used for unknown indication
  6. ACETAMINOPHEN\CODEINE PHOSPHATE [Interacting]
     Active Substance: ACETAMINOPHEN\CODEINE PHOSPHATE
     Route: 065
  7. ACETAMINOPHEN\CODEINE PHOSPHATE [Interacting]
     Active Substance: ACETAMINOPHEN\CODEINE PHOSPHATE
     Route: 065
  8. ACETAMINOPHEN\CODEINE PHOSPHATE [Interacting]
     Active Substance: ACETAMINOPHEN\CODEINE PHOSPHATE
  9. SEMAGLUTIDE [Interacting]
     Active Substance: SEMAGLUTIDE
     Indication: Obesity
     Dosage: 0.5 MILLIGRAM, QW
  10. SEMAGLUTIDE [Interacting]
     Active Substance: SEMAGLUTIDE
     Dosage: 0.5 MILLIGRAM, QW
     Route: 065
  11. SEMAGLUTIDE [Interacting]
     Active Substance: SEMAGLUTIDE
     Dosage: 0.5 MILLIGRAM, QW
     Route: 065
  12. SEMAGLUTIDE [Interacting]
     Active Substance: SEMAGLUTIDE
     Dosage: 0.5 MILLIGRAM, QW

REACTIONS (2)
  - Pancreatitis acute [Unknown]
  - Drug interaction [Unknown]
